FAERS Safety Report 8190492-7 (Version None)
Quarter: 2012Q1

REPORT INFORMATION
  Report Type: 
  Country: None (occurrence: None)
  Receive Date: 20120307
  Receipt Date: 20120228
  Transmission Date: 20120608
  Serious: Yes (Other)
  Sender: FDA-Public Use
  Company Number: PHHY2012GB017059

PATIENT
  Age: 44 Year
  Sex: Female

DRUGS (1)
  1. FLUOROURACIL [Suspect]
     Indication: ANAL CANCER
     Dosage: 1029 MG
     Route: 042
     Dates: start: 20120214, end: 20120214

REACTIONS (5)
  - CHEST PAIN [None]
  - NAUSEA [None]
  - HEART RATE DECREASED [None]
  - OVERDOSE [None]
  - CARDIOMYOPATHY [None]
